FAERS Safety Report 13498873 (Version 4)
Quarter: 2017Q4

REPORT INFORMATION
  Report Type: Spontaneous
  Country: FR (occurrence: FR)
  Receive Date: 20170501
  Receipt Date: 20171125
  Transmission Date: 20180320
  Serious: Yes (Hospitalization)
  Sender: FDA-Public Use
  Company Number: PHHY2017FR061989

PATIENT
  Age: 62 Year
  Sex: Female
  Weight: 46 kg

DRUGS (7)
  1. COSENTYX [Suspect]
     Active Substance: SECUKINUMAB
     Dosage: 300 MG, QMO
     Route: 058
     Dates: start: 201702
  2. METOJECT [Concomitant]
     Active Substance: METHOTREXATE SODIUM
     Indication: ANKYLOSING SPONDYLITIS
     Dosage: 7.5 MG, QW
     Route: 058
     Dates: start: 20170202
  3. COSENTYX [Suspect]
     Active Substance: SECUKINUMAB
     Dosage: 300 MG, QMO
     Route: 058
     Dates: start: 20170522
  4. COSENTYX [Suspect]
     Active Substance: SECUKINUMAB
     Dosage: 300 MG, QMO
     Route: 058
     Dates: start: 20170423
  5. COSENTYX [Suspect]
     Active Substance: SECUKINUMAB
     Indication: ANKYLOSING SPONDYLITIS
     Dosage: 150 MG, QMO
     Route: 058
     Dates: start: 201610, end: 201612
  6. CORTANCYL [Concomitant]
     Active Substance: PREDNISONE
     Indication: ANKYLOSING SPONDYLITIS
     Dosage: 5 MG, QD (5 TO 10 MG)
     Route: 065
  7. LEVOTHYROX [Concomitant]
     Active Substance: LEVOTHYROXINE
     Indication: BASEDOW^S DISEASE
     Dosage: 75 OT, QD
     Route: 065

REACTIONS (15)
  - Fungal infection [Recovering/Resolving]
  - C-reactive protein increased [Recovered/Resolved]
  - Spondyloarthropathy [Unknown]
  - Fatigue [Recovered/Resolved]
  - Fatigue [Recovering/Resolving]
  - Incorrect dose administered [Recovered/Resolved]
  - Pain [Recovered/Resolved]
  - Injection site pain [Recovered/Resolved]
  - Aortitis [Unknown]
  - Drug ineffective [Unknown]
  - Device occlusion [Recovered/Resolved]
  - Vulvovaginal mycotic infection [Unknown]
  - Osteopenia [Not Recovered/Not Resolved]
  - Nausea [Recovering/Resolving]
  - Pericarditis [Unknown]

NARRATIVE: CASE EVENT DATE: 201701
